FAERS Safety Report 5395320-0 (Version None)
Quarter: 2007Q3

REPORT INFORMATION
  Report Type: 
  Country: None (occurrence: None)
  Receive Date: 20070724
  Receipt Date: 20070723
  Transmission Date: 20080115
  Serious: Yes (Death, Hospitalization)
  Sender: FDA-Public Use
  Company Number: PHBS2007GT10929

PATIENT
  Age: 67 Year
  Sex: Male

DRUGS (8)
  1. FORADIL [Suspect]
     Indication: BRONCHOSPASM
     Dosage: 12 MG, Q12H
     Dates: start: 20020101
  2. GLYBURIDE [Concomitant]
     Dosage: 5 MG/DAY
  3. METFORMIN HCL [Concomitant]
     Dosage: 850 MG/DAY
     Route: 048
  4. TRAMADOL HCL [Concomitant]
     Route: 042
  5. DOLGENAL [Concomitant]
     Route: 042
  6. INSULIN [Concomitant]
     Route: 042
  7. PULMICORT [Concomitant]
     Dosage: UNK, Q12H
  8. CETRIAXONE [Concomitant]
     Dosage: 1 G, QD
     Route: 042

REACTIONS (22)
  - BLOOD CREATINE PHOSPHOKINASE INCREASED [None]
  - BRONCHIECTASIS [None]
  - BRONCHOSPASM [None]
  - BUNDLE BRANCH BLOCK LEFT [None]
  - CARDIO-RESPIRATORY ARREST [None]
  - CHEST PAIN [None]
  - CHEST TUBE INSERTION [None]
  - COUGH [None]
  - DYSPHONIA [None]
  - DYSPNOEA [None]
  - HYPOGLYCAEMIA [None]
  - HYPOXIA [None]
  - LUNG ADENOCARCINOMA METASTATIC [None]
  - MALAISE [None]
  - OXYGEN SATURATION DECREASED [None]
  - PULMONARY FIBROSIS [None]
  - PYREXIA [None]
  - STAPHYLOCOCCAL INFECTION [None]
  - SUBCUTANEOUS EMPHYSEMA [None]
  - TACHYPNOEA [None]
  - TREMOR [None]
  - TUBERCULOSIS [None]
